FAERS Safety Report 25006169 (Version 1)
Quarter: 2025Q1

REPORT INFORMATION
  Report Type: Spontaneous
  Country: US (occurrence: US)
  Receive Date: 20250224
  Receipt Date: 20250224
  Transmission Date: 20250409
  Serious: No
  Sender: ALEXION PHARMACEUTICALS
  Company Number: US-ASTRAZENECA-202502USA017024US

PATIENT

DRUGS (3)
  1. TRUQAP [Suspect]
     Active Substance: CAPIVASERTIB
     Route: 065
  2. TUKYSA [Suspect]
     Active Substance: TUCATINIB
     Route: 065
  3. ENHERTU [Suspect]
     Active Substance: FAM-TRASTUZUMAB DERUXTECAN-NXKI
     Route: 065

REACTIONS (7)
  - Diarrhoea [Unknown]
  - Cough [Unknown]
  - Throat irritation [Unknown]
  - Haemoptysis [Unknown]
  - Dyspnoea [Unknown]
  - Weight increased [Unknown]
  - Alopecia [Unknown]
